FAERS Safety Report 16961088 (Version 3)
Quarter: 2019Q4

REPORT INFORMATION
  Report Type: Spontaneous
  Country: US (occurrence: US)
  Receive Date: 20191025
  Receipt Date: 20191125
  Transmission Date: 20200122
  Serious: Yes (Other)
  Sender: FDA-Public Use
  Company Number: US-BAYER-2019-187345

PATIENT
  Age: 52 Year
  Sex: Female

DRUGS (7)
  1. GADAVIST [Suspect]
     Active Substance: GADOBUTROL
     Indication: MAGNETIC RESONANCE IMAGING
     Dosage: 5.5 UNK
  2. GADAVIST [Suspect]
     Active Substance: GADOBUTROL
     Indication: MAGNETIC RESONANCE IMAGING
     Dosage: 5 ML, ONCE
     Dates: start: 20160527
  3. GADAVIST [Suspect]
     Active Substance: GADOBUTROL
     Indication: MAGNETIC RESONANCE IMAGING
     Dosage: 5.5 UNK
  4. GADAVIST [Suspect]
     Active Substance: GADOBUTROL
     Indication: MAGNETIC RESONANCE IMAGING
     Dosage: 5.5 UNK
  5. GADAVIST [Suspect]
     Active Substance: GADOBUTROL
     Indication: MAGNETIC RESONANCE IMAGING
     Dosage: 5.5 UNK
  6. GADAVIST [Suspect]
     Active Substance: GADOBUTROL
     Indication: MAGNETIC RESONANCE IMAGING
     Dosage: 6 UNK
  7. GADAVIST [Suspect]
     Active Substance: GADOBUTROL
     Indication: MAGNETIC RESONANCE IMAGING
     Dosage: 7 ML, ONCE
     Dates: end: 20190618

REACTIONS (18)
  - Gait disturbance [Not Recovered/Not Resolved]
  - Alopecia [None]
  - Bone pain [None]
  - Pain [Not Recovered/Not Resolved]
  - Mobility decreased [None]
  - Contrast media reaction [None]
  - Headache [None]
  - Dysstasia [Not Recovered/Not Resolved]
  - Gait disturbance [None]
  - Dizziness [None]
  - Arthralgia [None]
  - Nephrogenic systemic fibrosis [Not Recovered/Not Resolved]
  - Suicidal ideation [Not Recovered/Not Resolved]
  - Arthralgia [Not Recovered/Not Resolved]
  - Quality of life decreased [Not Recovered/Not Resolved]
  - Overdose [Not Recovered/Not Resolved]
  - Nausea [None]
  - Tendon discomfort [None]

NARRATIVE: CASE EVENT DATE: 20160527
